FAERS Safety Report 6836176-6 (Version None)
Quarter: 2010Q3

REPORT INFORMATION
  Report Type: 
  Country: None (occurrence: None)
  Receive Date: 20100713
  Receipt Date: 20100701
  Transmission Date: 20110219
  Serious: Yes (Other)
  Sender: FDA-Public Use
  Company Number: US-ROCHE-714287

PATIENT
  Sex: Female

DRUGS (3)
  1. AVASTIN [Suspect]
     Indication: COLON CANCER
     Dosage: 5 YEARS AGO
     Route: 065
  2. OXALIPLATIN [Concomitant]
     Indication: COLON CANCER
     Dosage: ABOUT 5 YEARS AGO
  3. FLUOROURACIL [Concomitant]
     Indication: COLON CANCER
     Dosage: ABOUT 5 YEARS AGO

REACTIONS (1)
  - OSTEONECROSIS [None]
